FAERS Safety Report 8808489 (Version 2)
Quarter: 2013Q3

REPORT INFORMATION
  Report Type: Spontaneous
  Country: FR (occurrence: FR)
  Receive Date: 20120926
  Receipt Date: 20130911
  Transmission Date: 20140515
  Serious: Yes (Death, Hospitalization)
  Sender: FDA-Public Use
  Company Number: FR-SANOFI-AVENTIS-2012SA067611

PATIENT
  Age: 67 Year
  Sex: Female

DRUGS (7)
  1. LASILIX [Suspect]
     Indication: HYPERTENSION
     Route: 048
  2. VALDOXAN [Suspect]
     Indication: PRODUCT USED FOR UNKNOWN INDICATION
     Route: 048
     Dates: start: 20120411
  3. COOLMETEC [Suspect]
     Indication: HYPERTENSION
     Dosage: DOSE:1 UNIT(S)
     Route: 048
     Dates: end: 20120428
  4. DIFFU K [Concomitant]
  5. NEBIVOLOL [Concomitant]
  6. ACTONEL [Concomitant]
  7. IXPRIM [Concomitant]
     Dates: start: 2005

REACTIONS (1)
  - Hyponatraemia [Fatal]
